FAERS Safety Report 5636686-3 (Version None)
Quarter: 2008Q1

REPORT INFORMATION
  Report Type: 
  Country: None (occurrence: None)
  Receive Date: 20080219
  Receipt Date: 20080219
  Transmission Date: 20080703
  Serious: No
  Sender: FDA-Public Use
  Company Number: None

PATIENT
  Age: 59 Year
  Sex: Male
  Weight: 71.62 kg

DRUGS (3)
  1. VARENICLINE [Suspect]
     Indication: PAIN
     Dosage: 0.5MG BID PO
     Route: 048
     Dates: start: 20070827, end: 20070927
  2. VARENICLINE [Suspect]
     Indication: TOBACCO USER
     Dosage: 0.5MG BID PO
     Route: 048
     Dates: start: 20070827, end: 20070927
  3. LAMOTRIGINE [Suspect]
     Dosage: 25MG EVERY DAY
     Dates: start: 20070905, end: 20070927

REACTIONS (4)
  - INFLUENZA LIKE ILLNESS [None]
  - NAUSEA [None]
  - NEURALGIA [None]
  - VOMITING [None]
